FAERS Safety Report 5613378-8 (Version None)
Quarter: 2008Q1

REPORT INFORMATION
  Report Type: 
  Country: None (occurrence: None)
  Receive Date: 20080129
  Receipt Date: 20080111
  Transmission Date: 20080703
  Serious: Yes (Hospitalization, Disabling)
  Sender: FDA-Public Use
  Company Number: 2008EU000070

PATIENT
  Age: 61 Year
  Sex: Male

DRUGS (3)
  1. PROGRAF [Suspect]
     Indication: LUNG TRANSPLANT
     Dosage: /D, ORAL
     Route: 048
     Dates: start: 20070926
  2. CELLCEPT [Concomitant]
  3. CORTICOSTEROIDS [Concomitant]

REACTIONS (2)
  - ARTHRALGIA [None]
  - SERONEGATIVE ARTHRITIS [None]
